FAERS Safety Report 7724914-X (Version None)
Quarter: 2011Q3

REPORT INFORMATION
  Report Type: 
  Country: None (occurrence: None)
  Receive Date: 20110901
  Receipt Date: 20110826
  Transmission Date: 20111222
  Serious: Yes (Hospitalization)
  Sender: FDA-Public Use
  Company Number: US-ABBOTT-11P-163-0850272-00

PATIENT
  Sex: Male

DRUGS (9)
  1. HUMIRA [Suspect]
     Indication: RHEUMATOID ARTHRITIS
     Dates: start: 20110817, end: 20110817
  2. ASPIRIN [Concomitant]
     Indication: PRODUCT USED FOR UNKNOWN INDICATION
     Dosage: 81 MG DAILY
  3. HUMIRA [Suspect]
     Indication: PSORIASIS
     Dates: start: 20110803, end: 20110803
  4. HUMIRA [Suspect]
     Dates: start: 20110809
  5. WARFARIN SODIUM [Concomitant]
     Indication: PRODUCT USED FOR UNKNOWN INDICATION
     Dosage: 10 MG DAILY FOR 9 YEARS
  6. RAMIPRIL [Concomitant]
     Indication: HYPERTENSION
     Dosage: 10 MG DAILY FOR YEARS
  7. LIPITOR [Concomitant]
     Indication: BLOOD CHOLESTEROL INCREASED
     Dosage: 80 MG DAILY FOR MANY YEARS
  8. ZETIA [Concomitant]
     Indication: BLOOD CHOLESTEROL INCREASED
     Dosage: 10 MG DAILY FOR MANY YEARS
  9. POTASSIUM [Concomitant]
     Indication: PRODUCT USED FOR UNKNOWN INDICATION
     Dosage: 20MEQ DAILY

REACTIONS (7)
  - CHEST PAIN [None]
  - DYSPEPSIA [None]
  - ABDOMINAL PAIN UPPER [None]
  - PAIN [None]
  - CHILLS [None]
  - FATIGUE [None]
  - PYREXIA [None]
